FAERS Safety Report 10488016 (Version 1)
Quarter: 2014Q4

REPORT INFORMATION
  Report Type: Spontaneous
  Country: CH (occurrence: CH)
  Receive Date: 20141001
  Receipt Date: 20141001
  Transmission Date: 20150528
  Serious: Yes (Hospitalization)
  Sender: FDA-Public Use
  Company Number: CH-PFIZER INC-2014266181

PATIENT
  Age: 78 Year
  Sex: Female

DRUGS (11)
  1. AROMASIN [Suspect]
     Active Substance: EXEMESTANE
     Indication: LYMPHANGIOSIS CARCINOMATOSA
     Dosage: 25 MG, 1X/DAY
     Route: 048
     Dates: start: 20140618, end: 20140814
  2. MST CONTINUS ^MUNDIPHARMA^ [Concomitant]
     Dosage: 90 MG, 2X/DAY
     Route: 048
  3. LASILACTON [Suspect]
     Active Substance: FUROSEMIDE\SPIRONOLACTONE
     Indication: GENERALISED OEDEMA
     Dosage: 100/20 MG, 1X/DAY
     Route: 048
     Dates: start: 20140804, end: 20140814
  4. SERESTA [Concomitant]
     Active Substance: OXAZEPAM
     Dosage: 15 MG, 1X/DAY
     Route: 048
  5. AFINITOR [Suspect]
     Active Substance: EVEROLIMUS
     Indication: LYMPHANGIOSIS CARCINOMATOSA
     Dosage: 10 MG, 1X/DAY
     Route: 048
     Dates: start: 20140618, end: 20140804
  6. CIPRALEX [Concomitant]
     Active Substance: ESCITALOPRAM OXALATE
     Dosage: 10 MG, 1X/DAY
     Route: 048
  7. CALCIMAGON-D3 [Concomitant]
     Active Substance: CALCIUM\CHOLECALCIFEROL
     Indication: VITAMIN D DEFICIENCY
     Dosage: 1 DF, 2X/DAY
     Route: 048
  8. COAPROVEL [Concomitant]
     Active Substance: HYDROCHLOROTHIAZIDE\IRBESARTAN
     Indication: ESSENTIAL HYPERTENSION
     Dosage: 300/12.5  MG, 1X/DAY
     Route: 048
  9. EUTHYROX [Concomitant]
     Active Substance: LEVOTHYROXINE SODIUM
     Indication: HYPOTHYROIDISM
     Dosage: 25 UG, 1X/DAY
     Route: 048
  10. TOREM [Suspect]
     Active Substance: TORSEMIDE
     Indication: GENERALISED OEDEMA
     Dosage: 10 MG, 1X/DAY
     Route: 048
     Dates: start: 20140728, end: 20140804
  11. PREDNISONE. [Suspect]
     Active Substance: PREDNISONE
     Indication: PRURITUS
     Dosage: 30 MG, 1X/DAY
     Route: 048
     Dates: start: 20140811, end: 20140813

REACTIONS (4)
  - Generalised oedema [Recovering/Resolving]
  - Acute prerenal failure [Recovered/Resolved]
  - Pruritus [Recovering/Resolving]
  - Hyperglycaemia [Recovered/Resolved]

NARRATIVE: CASE EVENT DATE: 201406
